FAERS Safety Report 7948685-7 (Version None)
Quarter: 2011Q4

REPORT INFORMATION
  Report Type: 
  Country: None (occurrence: None)
  Receive Date: 20111130
  Receipt Date: 20111130
  Transmission Date: 20120403
  Serious: Yes (Death, Hospitalization)
  Sender: FDA-Public Use
  Company Number: None

PATIENT
  Age: 51 Year
  Sex: Male
  Weight: 84.821 kg

DRUGS (1)
  1. SIMVASTATIN [Suspect]
     Indication: DYSPNOEA
     Dosage: 20 MG
     Route: 048
     Dates: start: 20100601, end: 20100709

REACTIONS (7)
  - DYSPNOEA [None]
  - PRODUCTIVE COUGH [None]
  - ARTHRALGIA [None]
  - RASH ERYTHEMATOUS [None]
  - MYALGIA [None]
  - HYPOXIA [None]
  - RESPIRATORY FAILURE [None]
